FAERS Safety Report 7732923-X (Version None)
Quarter: 2011Q3

REPORT INFORMATION
  Report Type: 
  Country: None (occurrence: None)
  Receive Date: 20110907
  Receipt Date: 20110902
  Transmission Date: 20111222
  Serious: Yes (Death, Other)
  Sender: FDA-Public Use
  Company Number: US-PFIZER INC-2011206869

PATIENT
  Sex: Male

DRUGS (1)
  1. CHANTIX [Suspect]
     Dosage: UNK
     Dates: start: 20090108

REACTIONS (4)
  - ANGINA PECTORIS [None]
  - PALPITATIONS [None]
  - SUDDEN CARDIAC DEATH [None]
  - HEART RATE INCREASED [None]
